FAERS Safety Report 5610972-5 (Version None)
Quarter: 2008Q1

REPORT INFORMATION
  Report Type: 
  Country: None (occurrence: None)
  Receive Date: 20080201
  Receipt Date: 20080130
  Transmission Date: 20080703
  Serious: Yes (Hospitalization)
  Sender: FDA-Public Use
  Company Number: A0689455A

PATIENT
  Sex: Female

DRUGS (1)
  1. ALLI [Suspect]

REACTIONS (5)
  - ADVERSE EVENT [None]
  - EMOTIONAL DISTRESS [None]
  - FRUSTRATION [None]
  - GASTROINTESTINAL DISORDER [None]
  - WEIGHT INCREASED [None]
